FAERS Safety Report 21914198 (Version 1)
Quarter: 2023Q1

REPORT INFORMATION
  Report Type: Spontaneous
  Country: NL (occurrence: NL)
  Receive Date: 20230126
  Receipt Date: 20230126
  Transmission Date: 20230418
  Serious: Yes (Hospitalization, Other)
  Sender: FDA-Public Use
  Company Number: NL-ROCHE-3261400

PATIENT
  Age: 51 Year
  Sex: Male

DRUGS (5)
  1. IRINOTECAN [Suspect]
     Active Substance: IRINOTECAN
     Indication: Colorectal cancer metastatic
     Dosage: 180 MG/M2 IN 150 ML NACL 0.9%, 1.30-HOUR IV INFUSION EVERY 2 WEEKS
     Route: 042
     Dates: start: 20221213
  2. BEVACIZUMAB [Suspect]
     Active Substance: BEVACIZUMAB
     Indication: Colorectal cancer metastatic
     Dosage: UNK
     Route: 065
     Dates: start: 20221213
  3. CETUXIMAB [Suspect]
     Active Substance: CETUXIMAB
     Indication: Colorectal cancer metastatic
     Dosage: 400 MG/M2 IN 100 ML NACL 0.9% 2-HOUR IV INFUSION FOR 1RST CYCLE AND AFTER THE 1RST CYCLE 250 MG/M2 I
     Route: 042
     Dates: start: 20221213
  4. FLUOROURACIL [Suspect]
     Active Substance: FLUOROURACIL
     Indication: Colorectal cancer metastatic
     Dosage: 400 MG/M2, IV BOLUS EVERY 2 WEEKS 5-FU CONTINUOUS INFUSION 2400 MG/M2, 46-HOUR CONT. IV INFUSION EVE
     Route: 042
     Dates: start: 20221213
  5. LEUCOVORIN [Suspect]
     Active Substance: LEUCOVORIN
     Indication: Colorectal cancer metastatic
     Dosage: 200 MG/M2 (OR FOLINIC ACID 400 MG/M2) IN 250 ML GLUCOSE 5%, 2-HOUR IV INFUSION
     Route: 042
     Dates: start: 20221213

REACTIONS (1)
  - Large intestine perforation [Recovering/Resolving]

NARRATIVE: CASE EVENT DATE: 20221229
